FAERS Safety Report 23482594 (Version 2)
Quarter: 2025Q2

REPORT INFORMATION
  Report Type: Spontaneous
  Country: US (occurrence: CN)
  Receive Date: 20240205
  Receipt Date: 20250611
  Transmission Date: 20250716
  Serious: Yes (Other)
  Sender: JOHNSON AND JOHNSON
  Company Number: US-JNJFOC-20240210188

PATIENT
  Age: 66 Year
  Sex: Male

DRUGS (3)
  1. AMIVANTAMAB [Suspect]
     Active Substance: AMIVANTAMAB
     Indication: Lung adenocarcinoma
     Route: 065
  2. PREDNISONE [Suspect]
     Active Substance: PREDNISONE
     Route: 065
  3. ACITRETIN [Suspect]
     Active Substance: ACITRETIN
     Route: 065

REACTIONS (4)
  - Erosive pustular dermatosis [Recovered/Resolved]
  - Paronychia [Unknown]
  - Scrotal ulcer [Recovering/Resolving]
  - Skin maceration [Recovering/Resolving]
